FAERS Safety Report 4770541-6 (Version None)
Quarter: 2005Q3

REPORT INFORMATION
  Report Type: 
  Country: None (occurrence: None)
  Receive Date: 20050915
  Receipt Date: 20050713
  Transmission Date: 20060218
  Serious: No
  Sender: FDA-Public Use
  Company Number: US-GLAXOSMITHKLINE-A0566028A

PATIENT
  Age: 86 Year
  Sex: Female

DRUGS (1)
  1. ABREVA [Suspect]
     Dates: start: 20050704, end: 20050705

REACTIONS (3)
  - CHEILITIS [None]
  - HERPES SIMPLEX [None]
  - LIP PAIN [None]
